FAERS Safety Report 23793177 (Version 1)
Quarter: 2024Q2

REPORT INFORMATION
  Report Type: Spontaneous
  Country: FR (occurrence: FR)
  Receive Date: 20240429
  Receipt Date: 20240429
  Transmission Date: 20240716
  Serious: Yes (Life-Threatening, Hospitalization, Other)
  Sender: FDA-Public Use
  Company Number: FR-ALKEM LABORATORIES LIMITED-TH-ALKEM-2023-03797

PATIENT
  Age: 74 Year
  Sex: Male

DRUGS (1)
  1. DABIGATRAN ETEXILATE MESYLATE [Suspect]
     Active Substance: DABIGATRAN ETEXILATE MESYLATE
     Indication: Atrial fibrillation
     Dosage: 75 MILLIGRAM, BID (TWICE DAILY)
     Route: 065

REACTIONS (4)
  - Gastric ulcer haemorrhage [Unknown]
  - Shock haemorrhagic [Unknown]
  - Drug level increased [Recovering/Resolving]
  - Overdose [Unknown]
